FAERS Safety Report 16992550 (Version 1)
Quarter: 2019Q4

REPORT INFORMATION
  Report Type: Spontaneous
  Country: US (occurrence: US)
  Receive Date: 20190920
  Receipt Date: 20190920
  Transmission Date: 20200122
  Serious: Yes (Hospitalization)
  Sender: FDA-Public Use
  Company Number: None

PATIENT
  Age: 70 Year
  Sex: Male

DRUGS (5)
  1. ASPIRIN. [Suspect]
     Active Substance: ASPIRIN
     Indication: CARDIAC OPERATION
     Route: 048
     Dates: start: 20190812
  2. ERTAPENEM. [Suspect]
     Active Substance: ERTAPENEM SODIUM
     Indication: INFECTION
     Route: 042
     Dates: start: 20190809, end: 20190812
  3. ERTAPENEM. [Suspect]
     Active Substance: ERTAPENEM SODIUM
     Indication: VASCULAR OPERATION
     Route: 042
     Dates: start: 20190809, end: 20190812
  4. ERTAPENEM. [Suspect]
     Active Substance: ERTAPENEM SODIUM
     Indication: CARDIAC OPERATION
     Route: 042
     Dates: start: 20190809, end: 20190812
  5. ASPIRIN. [Suspect]
     Active Substance: ASPIRIN
     Indication: VASCULAR OPERATION
     Route: 048
     Dates: start: 20190812

REACTIONS (16)
  - Pruritus [None]
  - Malaise [None]
  - Urticaria [None]
  - Rash macular [None]
  - Mouth swelling [None]
  - Pyrexia [None]
  - Catheter site rash [None]
  - Drug eruption [None]
  - Candida test positive [None]
  - Culture wound positive [None]
  - Hepatic enzyme increased [None]
  - Rash [None]
  - Cough [None]
  - Venous thrombosis limb [None]
  - Rash follicular [None]
  - Peripheral swelling [None]

NARRATIVE: CASE EVENT DATE: 20190829
